FAERS Safety Report 5212215-3 (Version None)
Quarter: 2006Q4

REPORT INFORMATION
  Report Type: 
  Country: None (occurrence: None)
  Receive Date: 20061115
  Receipt Date: 20060922
  Transmission Date: 20070319
  Serious: No
  Sender: FDA-Public Use
  Company Number: 200610758BWH

PATIENT
  Age: 62 Year
  Sex: Male
  Weight: 120.2032 kg

DRUGS (5)
  1. NEXAVAR [Suspect]
     Indication: RENAL CELL CARCINOMA STAGE UNSPECIFIED
     Dosage: 400 MG, BID, ORAL
     Route: 048
     Dates: start: 20060131
  2. HERBAL PRODUCT [Concomitant]
  3. TOPROL-XL [Concomitant]
  4. NORVASC [Concomitant]
  5. POTASSIUM SUPPLEMENT [Concomitant]

REACTIONS (11)
  - ALOPECIA [None]
  - DIARRHOEA [None]
  - FACIAL PAIN [None]
  - FLUSHING [None]
  - GLOSSODYNIA [None]
  - MADAROSIS [None]
  - PAIN OF SKIN [None]
  - PILOERECTION [None]
  - PRURITUS [None]
  - SKIN EXFOLIATION [None]
  - SKIN TIGHTNESS [None]
